FAERS Safety Report 5942579-4 (Version None)
Quarter: 2008Q4

REPORT INFORMATION
  Report Type: 
  Country: None (occurrence: None)
  Receive Date: 20081105
  Receipt Date: 20080813
  Transmission Date: 20090506
  Serious: Yes (Hospitalization)
  Sender: FDA-Public Use
  Company Number: IT-PFIZER INC-2006143878

PATIENT
  Sex: Female
  Weight: 62 kg

DRUGS (2)
  1. SU-011,248 [Suspect]
     Indication: RENAL CANCER METASTATIC
     Route: 048
     Dates: start: 20061106, end: 20061112
  2. TELMISARTAN [Concomitant]
     Route: 048

REACTIONS (1)
  - HAEMOPTYSIS [None]
